FAERS Safety Report 5153688-4 (Version None)
Quarter: 2006Q4

REPORT INFORMATION
  Report Type: 
  Country: None (occurrence: None)
  Receive Date: 20061114
  Receipt Date: 20061026
  Transmission Date: 20070319
  Serious: Yes (Hospitalization)
  Sender: FDA-Public Use
  Company Number: ACO_0281_2006

PATIENT
  Age: 59 Year
  Sex: Female

DRUGS (10)
  1. SIRDALUD [Suspect]
     Dosage: 4 MG QDAY PO
     Route: 048
     Dates: start: 20060501, end: 20060709
  2. DORMICUM [Concomitant]
  3. EDRONAX [Concomitant]
  4. BUSPAR [Concomitant]
  5. ESTROGENS [Concomitant]
  6. CALCIMAGON [Concomitant]
  7. OMED [Concomitant]
  8. SPEDIFEN [Concomitant]
  9. VALVERDE [Concomitant]
  10. FOSAMAX [Concomitant]

REACTIONS (5)
  - BLOOD PRESSURE DECREASED [None]
  - DYSPHAGIA [None]
  - ORTHOSTATIC INTOLERANCE [None]
  - PNEUMONIA ASPIRATION [None]
  - SYNCOPE [None]
